FAERS Safety Report 6078812-0 (Version None)
Quarter: 2009Q1

REPORT INFORMATION
  Report Type: 
  Country: None (occurrence: None)
  Receive Date: 20090216
  Receipt Date: 20090114
  Transmission Date: 20090719
  Serious: No
  Sender: FDA-Public Use
  Company Number: US-BAYER-200910146BCC

PATIENT
  Age: 59 Year
  Sex: Female
  Weight: 59 kg

DRUGS (7)
  1. ALEVE (CAPLET) [Suspect]
     Indication: NEURALGIA
     Dosage: UNIT DOSE: 220 MG
     Dates: start: 20080101
  2. ALEVE (CAPLET) [Suspect]
     Dosage: UNIT DOSE: 220 MG
     Dates: start: 20081201
  3. ATENOLOL [Concomitant]
  4. HYDROCHLOROTHIAZIDE [Concomitant]
  5. SIMVASTATIN [Concomitant]
  6. CARBAMAZEPINE [Concomitant]
  7. ASPIRIN [Concomitant]

REACTIONS (1)
  - CONSTIPATION [None]
